FAERS Safety Report 5889823-X (Version None)
Quarter: 2008Q3

REPORT INFORMATION
  Report Type: 
  Country: None (occurrence: None)
  Receive Date: 20080919
  Receipt Date: 20080916
  Transmission Date: 20090109
  Serious: Yes (Hospitalization)
  Sender: FDA-Public Use
  Company Number: FR-BRISTOL-MYERS SQUIBB COMPANY-14339030

PATIENT
  Age: 23 Year
  Sex: Female

DRUGS (1)
  1. SPRYCEL [Suspect]
     Indication: CHRONIC MYELOID LEUKAEMIA
     Dosage: 50MG TABLET AT 100MG PER DAY.
     Dates: start: 20080101

REACTIONS (1)
  - THROMBOTIC THROMBOCYTOPENIC PURPURA [None]
